FAERS Safety Report 18835920 (Version 1)
Quarter: 2021Q1

REPORT INFORMATION
  Report Type: Spontaneous
  Country: US (occurrence: US)
  Receive Date: 20210203
  Receipt Date: 20210203
  Transmission Date: 20210419
  Serious: No
  Sender: FDA-Public Use
  Company Number: US-ALLERGAN-2007344US

PATIENT
  Age: 35 Year

DRUGS (2)
  1. BOTOX COSMETIC [Suspect]
     Active Substance: ONABOTULINUMTOXINA
     Indication: SKIN WRINKLING
     Dosage: UNK, SINGLE
     Dates: start: 20200204, end: 20200204
  2. BOTOX COSMETIC [Suspect]
     Active Substance: ONABOTULINUMTOXINA
     Indication: SKIN WRINKLING
     Dosage: UNK, SINGLE
     Dates: start: 20200204, end: 20200204

REACTIONS (8)
  - Muscle twitching [Unknown]
  - Vein disorder [Unknown]
  - Photophobia [Unknown]
  - Facial pain [Unknown]
  - Temporomandibular joint syndrome [Unknown]
  - Discomfort [Unknown]
  - Paraesthesia [Unknown]
  - Eyelid ptosis [Unknown]

NARRATIVE: CASE EVENT DATE: 20200206
